FAERS Safety Report 17600273 (Version 1)
Quarter: 2020Q3

REPORT INFORMATION
  Report Type: Report from Study
  Country: US (occurrence: US)
  Receive Date: 20200330
  Receipt Date: 20200330
  Transmission Date: 20201105
  Serious: Yes (Life-Threatening, Hospitalization)
  Sender: FDA-Public Use
  Company Number: NVSC2020US086987

PATIENT
  Age: 58 Year
  Sex: Female
  Weight: 90.6 kg

DRUGS (9)
  1. FENTANYL. [Concomitant]
     Active Substance: FENTANYL
     Indication: OROPHARYNGEAL SQUAMOUS CELL CARCINOMA
     Route: 065
  2. LASIX [Concomitant]
     Active Substance: FUROSEMIDE
     Indication: PRODUCT USED FOR UNKNOWN INDICATION
     Dosage: 20 MG
     Route: 042
     Dates: start: 20200302
  3. METHYLPREDNISOLONE. [Concomitant]
     Active Substance: METHYLPREDNISOLONE
     Indication: PRODUCT USED FOR UNKNOWN INDICATION
     Route: 065
  4. CYCLOPHOSPHAMIDE. [Suspect]
     Active Substance: CYCLOPHOSPHAMIDE
     Indication: OROPHARYNGEAL SQUAMOUS CELL CARCINOMA
     Dosage: 4806 MG, Q24H
     Route: 042
     Dates: start: 20200218, end: 20200219
  5. PREDNISONE. [Concomitant]
     Active Substance: PREDNISONE
     Indication: PRODUCT USED FOR UNKNOWN INDICATION
     Dosage: 1 MG/KG
     Route: 048
  6. PROLEUKIN [Suspect]
     Active Substance: ALDESLEUKIN
     Indication: OROPHARYNGEAL SQUAMOUS CELL CARCINOMA
     Dosage: 46.1 MIU, Q8H
     Route: 042
     Dates: start: 20200225, end: 20200227
  7. MESNA. [Suspect]
     Active Substance: MESNA
     Indication: OROPHARYNGEAL SQUAMOUS CELL CARCINOMA
     Dosage: 5290 MG
     Route: 042
     Dates: start: 20200218, end: 20200219
  8. FLUDARABINE PHOSPHATE. [Suspect]
     Active Substance: FLUDARABINE PHOSPHATE
     Indication: OROPHARYNGEAL SQUAMOUS CELL CARCINOMA
     Dosage: 1 DF, QD (FOR OVER 30 MIN)
     Route: 042
     Dates: start: 20200220, end: 20200224
  9. HYDROCODONE/ACETAMINOPHEN [Concomitant]
     Active Substance: ACETAMINOPHEN\HYDROCODONE
     Indication: OROPHARYNGEAL SQUAMOUS CELL CARCINOMA
     Dosage: UNK
     Route: 065
     Dates: start: 20180813

REACTIONS (1)
  - Capillary leak syndrome [Recovered/Resolved]

NARRATIVE: CASE EVENT DATE: 20200303
